FAERS Safety Report 19080893 (Version 4)
Quarter: 2022Q2

REPORT INFORMATION
  Report Type: Other
  Country: JP (occurrence: JP)
  Receive Date: 20210401
  Receipt Date: 20220621
  Transmission Date: 20220721
  Serious: Yes (Other)
  Sender: FDA-Public Use
  Company Number: JP-CHUGAI-A2021013096ROCHE

PATIENT
  Age: 74 Year
  Sex: Female
  Weight: 51 kg

DRUGS (4)
  1. ENTRECTINIB [Suspect]
     Active Substance: ENTRECTINIB
     Indication: Non-small cell lung cancer
     Route: 048
     Dates: start: 20210202, end: 20210208
  2. ENTRECTINIB [Suspect]
     Active Substance: ENTRECTINIB
     Route: 048
     Dates: start: 20210211, end: 20210330
  3. ENTRECTINIB [Suspect]
     Active Substance: ENTRECTINIB
     Route: 041
     Dates: start: 20210407, end: 20210601
  4. ENTRECTINIB [Suspect]
     Active Substance: ENTRECTINIB
     Route: 041
     Dates: start: 20210609, end: 20220201

REACTIONS (4)
  - Renal impairment [Not Recovered/Not Resolved]
  - Liver function test increased [Recovering/Resolving]
  - Faeces pale [Unknown]
  - Ataxia [Recovered/Resolved]

NARRATIVE: CASE EVENT DATE: 20210330
